FAERS Safety Report 5409420-X (Version None)
Quarter: 2007Q3

REPORT INFORMATION
  Report Type: 
  Country: None (occurrence: None)
  Receive Date: 20070807
  Receipt Date: 20070726
  Transmission Date: 20080115
  Serious: Yes (Life-Threatening)
  Sender: FDA-Public Use
  Company Number: GXKR2007RO06450

PATIENT
  Age: 49 Year
  Sex: Female

DRUGS (2)
  1. SIMVASTATIN [Suspect]
     Dosage: ORAL
     Route: 048
     Dates: start: 20070516, end: 20070519
  2. LISINOPRIL [Suspect]
     Dosage: ORAL
     Route: 048
     Dates: start: 20070516, end: 20070519

REACTIONS (4)
  - CHEST PAIN [None]
  - PRURIGO [None]
  - RASH [None]
  - RESPIRATORY FAILURE [None]
